FAERS Safety Report 8333189-2 (Version None)
Quarter: 2012Q2

REPORT INFORMATION
  Report Type: 
  Country: None (occurrence: None)
  Receive Date: 20120503
  Receipt Date: 20120426
  Transmission Date: 20120825
  Serious: Yes (Hospitalization, Other)
  Sender: FDA-Public Use
  Company Number: US-AMGEN-USASP2012026553

PATIENT
  Age: 53 Year
  Sex: Male

DRUGS (1)
  1. ENBREL [Suspect]
     Indication: PSORIATIC ARTHROPATHY
     Dosage: 50 MG, QWK
     Dates: start: 20120324

REACTIONS (6)
  - ATRIAL FIBRILLATION [None]
  - RIB FRACTURE [None]
  - SOMNOLENCE [None]
  - SOMNAMBULISM [None]
  - LOSS OF CONSCIOUSNESS [None]
  - FALL [None]
